FAERS Safety Report 10378604 (Version 2)
Quarter: 2014Q3

REPORT INFORMATION
  Report Type: Report from Study
  Country: US (occurrence: US)
  Receive Date: 20140812
  Receipt Date: 20140915
  Transmission Date: 20150326
  Serious: Yes (Hospitalization)
  Sender: FDA-Public Use
  Company Number: US-SA-2014SA107531

PATIENT
  Age: 50 Year
  Sex: Male
  Weight: 98.8 kg

DRUGS (2)
  1. LANTUS SOLOSTAR [Suspect]
     Active Substance: INSULIN GLARGINE
     Indication: DIABETES MELLITUS
     Dosage: DOSE:35 UNIT(S)
     Route: 065
     Dates: start: 20130328, end: 20131117
  2. SOLOSTAR [Concomitant]
     Active Substance: DEVICE
     Indication: DIABETES MELLITUS
     Dates: start: 20130328

REACTIONS (4)
  - Blood glucose increased [Unknown]
  - Impaired driving ability [Unknown]
  - Hypoaesthesia [Unknown]
  - Surgery [Unknown]
